FAERS Safety Report 15634394 (Version 2)
Quarter: 2018Q4

REPORT INFORMATION
  Report Type: Spontaneous
  Country: US (occurrence: US)
  Receive Date: 20181119
  Receipt Date: 20181211
  Transmission Date: 20190205
  Serious: No
  Sender: FDA-Public Use
  Company Number: US-PFIZER INC-2018261429

PATIENT
  Age: 55 Year
  Sex: Female
  Weight: 139.7 kg

DRUGS (1)
  1. SOMATROPIN. [Suspect]
     Active Substance: SOMATROPIN
     Dosage: 0.4 MG, UNK

REACTIONS (3)
  - Feeling jittery [Unknown]
  - Tremor [Unknown]
  - Dyspnoea [Unknown]
